FAERS Safety Report 11861499 (Version 1)
Quarter: 2015Q4

REPORT INFORMATION
  Report Type: Spontaneous
  Country: CN (occurrence: CN)
  Receive Date: 20151222
  Receipt Date: 20151222
  Transmission Date: 20160305
  Serious: Yes (Hospitalization)
  Sender: FDA-Public Use
  Company Number: CN-JNJFOC-20151210990

PATIENT
  Age: 64 Year
  Sex: Male

DRUGS (1)
  1. SPORANOX [Suspect]
     Active Substance: ITRACONAZOLE
     Indication: ONYCHOMYCOSIS
     Dosage: A WEEK CONSECUTIVELY (ONE TREATMENT COURSE),
     Route: 048

REACTIONS (1)
  - Tubulointerstitial nephritis [Recovering/Resolving]
